FAERS Safety Report 5159463-9 (Version None)
Quarter: 2006Q4

REPORT INFORMATION
  Report Type: 
  Country: None (occurrence: None)
  Receive Date: 20061122
  Receipt Date: 20061122
  Transmission Date: 20070319
  Serious: Yes (Hospitalization)
  Sender: FDA-Public Use
  Company Number: None

PATIENT
  Age: 75 Year
  Sex: Male
  Weight: 105 kg

DRUGS (18)
  1. WARFARIN SODIUM [Suspect]
     Indication: CARDIAC VALVE DISEASE
     Dosage: 10MG/7.5MG QTHUR/ROW PO
     Route: 048
     Dates: start: 19990101, end: 20061121
  2. WARFARIN SODIUM [Suspect]
     Indication: CEREBROVASCULAR ACCIDENT
     Dosage: 10MG/7.5MG QTHUR/ROW PO
     Route: 048
     Dates: start: 19990101, end: 20061121
  3. WARFARIN SODIUM [Suspect]
     Indication: CORONARY ARTERY DISEASE
     Dosage: 10MG/7.5MG QTHUR/ROW PO
     Route: 048
     Dates: start: 19990101, end: 20061121
  4. CLOPIDOGREL [Suspect]
     Indication: CARDIAC VALVE DISEASE
     Dosage: 75MG DAILY PO
     Route: 048
     Dates: start: 20060612, end: 20061121
  5. CLOPIDOGREL [Suspect]
     Indication: CEREBROVASCULAR ACCIDENT
     Dosage: 75MG DAILY PO
     Route: 048
     Dates: start: 20060612, end: 20061121
  6. CLOPIDOGREL [Suspect]
     Indication: CORONARY ARTERY DISEASE
     Dosage: 75MG DAILY PO
     Route: 048
     Dates: start: 20060612, end: 20061121
  7. ACETAMINOPHEN [Concomitant]
  8. ASPIRIN [Concomitant]
  9. FELODOPINE [Concomitant]
  10. LISINOPRIL [Concomitant]
  11. NITROGLYCERIN [Concomitant]
  12. OMEPRAZOLE [Concomitant]
  13. TERAZOSIN HCL [Concomitant]
  14. CLOPIDOGREL [Concomitant]
  15. ISOSORBIDE MONONITRATE [Concomitant]
  16. LOVASTATIN [Concomitant]
  17. METOPROLOL SUCCINATE [Concomitant]
  18. FISH OIL [Concomitant]

REACTIONS (8)
  - ANAEMIA [None]
  - CHEST PAIN [None]
  - DUODENAL ULCER [None]
  - DYSPNOEA [None]
  - DYSPNOEA EXERTIONAL [None]
  - FAECES DISCOLOURED [None]
  - INTERNATIONAL NORMALISED RATIO INCREASED [None]
  - UPPER GASTROINTESTINAL HAEMORRHAGE [None]
